FAERS Safety Report 10623179 (Version 1)
Quarter: 2014Q4

REPORT INFORMATION
  Report Type: Spontaneous
  Country: US (occurrence: None)
  Receive Date: 20141202
  Receipt Date: 20141202
  Transmission Date: 20150529
  Serious: Yes (Hospitalization, Other)
  Sender: FDA-Public Use
  Company Number: None

PATIENT
  Age: 20 Year
  Sex: Female
  Weight: 92.99 kg

DRUGS (1)
  1. CIPRO [Suspect]
     Active Substance: CIPROFLOXACIN HYDROCHLORIDE
     Indication: URINARY TRACT INFECTION
     Dosage: 1 PILLS
     Route: 048

REACTIONS (7)
  - Hypoaesthesia [None]
  - Neuropathy peripheral [None]
  - Back pain [None]
  - Burning sensation [None]
  - Nerve injury [None]
  - Paraesthesia [None]
  - Walking aid user [None]

NARRATIVE: CASE EVENT DATE: 20140929
